FAERS Safety Report 6493238-3 (Version None)
Quarter: 2009Q4

REPORT INFORMATION
  Report Type: 
  Country: None (occurrence: None)
  Receive Date: 20091211
  Receipt Date: 20091211
  Transmission Date: 20100525
  Serious: Yes (Other)
  Sender: FDA-Public Use
  Company Number: None

PATIENT
  Age: 39 Year
  Sex: Female
  Weight: 77.1115 kg

DRUGS (1)
  1. HYDROMORPHONE HCL [Suspect]
     Indication: PAIN MANAGEMENT
     Dosage: 1 OR 2 EVERY 4 HOURS PO
     Route: 048
     Dates: start: 20091124, end: 20091206

REACTIONS (5)
  - BIPOLAR DISORDER [None]
  - DEPRESSION [None]
  - DRUG INTERACTION [None]
  - HYPOMANIA [None]
  - SUICIDAL IDEATION [None]
